FAERS Safety Report 7866295-7 (Version None)
Quarter: 2011Q4

REPORT INFORMATION
  Report Type: 
  Country: None (occurrence: None)
  Receive Date: 20111028
  Receipt Date: 20110526
  Transmission Date: 20120403
  Serious: No
  Sender: FDA-Public Use
  Company Number: US-GLAXOSMITHKLINE-A0929305A

PATIENT
  Age: 68 Year
  Sex: Female

DRUGS (5)
  1. SINGULAIR [Concomitant]
  2. LORADIN [Concomitant]
  3. SPIRIVA [Concomitant]
  4. VITAMIN TAB [Concomitant]
  5. ADVAIR DISKUS 100/50 [Suspect]
     Indication: CHRONIC OBSTRUCTIVE PULMONARY DISEASE
     Dosage: 2PUFF TWICE PER DAY
     Route: 055
     Dates: start: 20100901, end: 20100901

REACTIONS (4)
  - DYSARTHRIA [None]
  - POOR QUALITY SLEEP [None]
  - DIZZINESS [None]
  - MALAISE [None]
